FAERS Safety Report 20101176 (Version 1)
Quarter: 2021Q4

REPORT INFORMATION
  Report Type: Spontaneous
  Country: DE (occurrence: None)
  Receive Date: 20211123
  Receipt Date: 20211123
  Transmission Date: 20220303
  Serious: Yes (Hospitalization, Other)
  Sender: FDA-Public Use
  Company Number: 2021A811949

PATIENT
  Age: 82 Year
  Sex: Male

DRUGS (14)
  1. XIGDUO XR [Suspect]
     Active Substance: DAPAGLIFLOZIN PROPANEDIOL\METFORMIN HYDROCHLORIDE
     Route: 048
  2. ACETYLSALICYLIC ACID [Concomitant]
     Route: 065
  3. DISOPROLOL HYDROCHLORTHIAZIDE [Concomitant]
     Route: 065
  4. DISOPROLOL HYDROCHLORTHIAZIDE [Concomitant]
     Route: 065
  5. RAMIPRIL [Concomitant]
     Active Substance: RAMIPRIL
     Route: 065
  6. AMLODIPINE [Concomitant]
     Active Substance: AMLODIPINE BESYLATE
     Route: 065
  7. MEXONIDINE [Concomitant]
     Route: 065
  8. ROSUVASTATIN [Concomitant]
     Active Substance: ROSUVASTATIN
     Route: 065
  9. DAPAGLIFLOZIN [Concomitant]
     Active Substance: DAPAGLIFLOZIN
     Route: 065
  10. METFORMIN HYDROCHLORIDE [Concomitant]
     Active Substance: METFORMIN HYDROCHLORIDE
     Route: 065
  11. LEVOTHYROXINE SODIUM [Concomitant]
     Active Substance: LEVOTHYROXINE SODIUM
     Route: 065
  12. FERRIT(II) ION [Concomitant]
     Route: 065
  13. FOLIC ACID [Concomitant]
     Active Substance: FOLIC ACID
     Route: 065
  14. VITAMIN B12 [Concomitant]
     Active Substance: CYANOCOBALAMIN
     Indication: Vitamin B12 deficiency
     Route: 065

REACTIONS (5)
  - Chronic obstructive pulmonary disease [Unknown]
  - Hypertensive crisis [Unknown]
  - General physical health deterioration [Unknown]
  - Vitamin B12 deficiency [Unknown]
  - Dry skin [Unknown]

NARRATIVE: CASE EVENT DATE: 20211006
